FAERS Safety Report 7411635-6 (Version None)
Quarter: 2011Q2

REPORT INFORMATION
  Report Type: 
  Country: None (occurrence: None)
  Receive Date: 20110402
  Receipt Date: 20110402
  Transmission Date: 20111010
  Serious: No
  Sender: FDA-Public Use
  Company Number: None

PATIENT
  Age: 77 Year
  Sex: Male
  Weight: 86.5 kg

DRUGS (1)
  1. BEVACIZUMAB [Suspect]
     Indication: MACULAR OEDEMA
     Dosage: 1.25 MG ONCE
     Dates: start: 20110329, end: 20110329

REACTIONS (3)
  - BLINDNESS UNILATERAL [None]
  - EYE PAIN [None]
  - PRODUCT CONTAMINATION [None]
